FAERS Safety Report 25427119 (Version 1)
Quarter: 2025Q2

REPORT INFORMATION
  Report Type: Report from Study
  Country: IT (occurrence: IT)
  Receive Date: 20250612
  Receipt Date: 20250612
  Transmission Date: 20250716
  Serious: Yes (Other)
  Sender: CELLTRION
  Company Number: None

PATIENT

DRUGS (4)
  1. INFLIXIMAB [Suspect]
     Active Substance: INFLIXIMAB
     Indication: Colitis ulcerative
     Route: 058
  2. METHOTREXATE SODIUM [Concomitant]
     Active Substance: METHOTREXATE SODIUM
     Indication: Colitis ulcerative
     Route: 058
  3. ASACOL [Concomitant]
     Active Substance: MESALAMINE
     Indication: Colitis ulcerative
     Route: 054
  4. ASACOL [Concomitant]
     Active Substance: MESALAMINE
     Route: 048
     Dates: start: 20181001

REACTIONS (1)
  - Basosquamous carcinoma [Recovered/Resolved]

NARRATIVE: CASE EVENT DATE: 20240220
